FAERS Safety Report 5928116-9 (Version None)
Quarter: 2008Q4

REPORT INFORMATION
  Report Type: 
  Country: None (occurrence: None)
  Receive Date: 20081020
  Receipt Date: 20081009
  Transmission Date: 20090506
  Serious: Yes (Death, Hospitalization, Other)
  Sender: FDA-Public Use
  Company Number: 2008US002721

PATIENT
  Age: 68 Year
  Sex: Male

DRUGS (7)
  1. PROGRAF [Suspect]
     Indication: LUNG TRANSPLANT
  2. CORTICOSTEROIDS [Suspect]
     Indication: LUNG TRANSPLANT
     Dosage: UNK
  3. MYCOPHENOLATE MOFETIL [Suspect]
     Dosage: UNK
  4. DACLIZUMAB [Suspect]
  5. VORICONAZOLE (VORICONAZOLE) [Concomitant]
  6. VALCYTE [Concomitant]
  7. DAPSONE [Concomitant]

REACTIONS (12)
  - ABSCESS [None]
  - ADHESION [None]
  - ATRIAL FIBRILLATION [None]
  - LUNG CONSOLIDATION [None]
  - LUNG TRANSPLANT REJECTION [None]
  - OEDEMA PERIPHERAL [None]
  - PERICARDIAL EFFUSION [None]
  - PLEURAL EFFUSION [None]
  - POST PROCEDURAL COMPLICATION [None]
  - PYREXIA [None]
  - SEPTIC SHOCK [None]
  - TUBERCULOSIS [None]
